FAERS Safety Report 25057652 (Version 1)
Quarter: 2025Q1

REPORT INFORMATION
  Report Type: Spontaneous
  Country: US (occurrence: US)
  Receive Date: 20250310
  Receipt Date: 20250310
  Transmission Date: 20250409
  Serious: No
  Sender: ARS PHARMACEUTICALS OPERATIONS, INC.
  Company Number: US-ARS PHARMACEUTICALS OPERATIONS, INC.-2024ARP00024

PATIENT
  Age: 22 Year
  Sex: Female
  Weight: 81.179 kg

DRUGS (5)
  1. NEFFY [Suspect]
     Active Substance: EPINEPHRINE
     Indication: Anaphylactic reaction
     Route: 045
     Dates: start: 20241113, end: 20241113
  2. NEFFY [Suspect]
     Active Substance: EPINEPHRINE
     Indication: Hypersensitivity
  3. NEFFY [Suspect]
     Active Substance: EPINEPHRINE
     Indication: Allergy test
  4. PROZAC [Concomitant]
     Active Substance: FLUOXETINE HYDROCHLORIDE
  5. QSYMIA [Concomitant]
     Active Substance: PHENTERMINE HYDROCHLORIDE\TOPIRAMATE

REACTIONS (4)
  - Nasal dryness [Recovered/Resolved]
  - Epistaxis [Not Recovered/Not Resolved]
  - Dyspnoea [Recovered/Resolved]
  - Nasal discomfort [Recovered/Resolved]

NARRATIVE: CASE EVENT DATE: 20241113
